FAERS Safety Report 19711631 (Version 1)
Quarter: 2021Q3

REPORT INFORMATION
  Report Type: Spontaneous
  Country: IN (occurrence: IN)
  Receive Date: 20210817
  Receipt Date: 20210817
  Transmission Date: 20211014
  Serious: Yes (Death)
  Sender: FDA-Public Use
  Company Number: IN-PFIZER INC-2017177382

PATIENT
  Age: 57 Year
  Sex: Female

DRUGS (26)
  1. FULVESTRANT. [Concomitant]
     Active Substance: FULVESTRANT
     Dosage: 500 MG, UNK
  2. BISPHOSPHONATES [Concomitant]
     Active Substance: UNSPECIFIED INGREDIENT
     Dosage: UNK
     Dates: start: 20171227
  3. PALBACE [Suspect]
     Active Substance: PALBOCICLIB
     Dosage: 125 MG, ONCE DAILY
     Dates: start: 20170615, end: 20170706
  4. FULVESTRANT. [Concomitant]
     Active Substance: FULVESTRANT
     Dosage: 500 MG, UNK
     Dates: start: 20170312
  5. FULVESTRANT. [Concomitant]
     Active Substance: FULVESTRANT
     Dosage: 500 MG, UNK
     Dates: start: 20170822
  6. FULVESTRANT. [Concomitant]
     Active Substance: FULVESTRANT
     Dosage: UNK
     Dates: start: 20170917
  7. FULVESTRANT. [Concomitant]
     Active Substance: FULVESTRANT
     Dosage: 500 MG, UNK
     Dates: start: 20161214
  8. FULVESTRANT. [Concomitant]
     Active Substance: FULVESTRANT
     Dosage: 500 MG, UNK
     Dates: start: 20170625
  9. FULVESTRANT. [Concomitant]
     Active Substance: FULVESTRANT
     Dosage: 500 MG, UNK
     Dates: start: 20171024
  10. FULVESTRANT. [Concomitant]
     Active Substance: FULVESTRANT
     Dosage: 500 MG, UNK
     Dates: start: 20171227
  11. PALBACE [Suspect]
     Active Substance: PALBOCICLIB
     Dosage: 100 MG ONCE DAILY (3 WEEKS)
     Dates: start: 20180112
  12. ZOLEDRONIC ACID [Concomitant]
     Active Substance: ZOLEDRONIC ACID
     Dosage: 4 MG, UNK
     Route: 042
     Dates: start: 20170210
  13. FULVESTRANT. [Concomitant]
     Active Substance: FULVESTRANT
     Dosage: 500 MG, UNK
     Dates: start: 20170212
  14. ZOLEDRONIC ACID [Concomitant]
     Active Substance: ZOLEDRONIC ACID
     Dosage: 4 MG, UNK (EVERY 2 MONTHS)
     Route: 042
  15. ZOLEDRONIC ACID [Concomitant]
     Active Substance: ZOLEDRONIC ACID
     Dosage: UNK
     Dates: start: 20171022
  16. BISPHOSPHONATES [Concomitant]
     Active Substance: UNSPECIFIED INGREDIENT
     Dosage: UNK
     Dates: start: 20161214
  17. BISPHOSPHONATES [Concomitant]
     Active Substance: UNSPECIFIED INGREDIENT
     Dosage: UNK
     Dates: start: 20171024
  18. ANASTROZOLE 2CARE4 [Concomitant]
     Dosage: 1 MG, 1X/DAY
     Dates: start: 201606
  19. BISPHOSPHONATES [Concomitant]
     Active Substance: UNSPECIFIED INGREDIENT
     Dosage: UNK
     Dates: start: 20170105
  20. BISPHOSPHONATES [Concomitant]
     Active Substance: UNSPECIFIED INGREDIENT
     Dosage: UNK
     Dates: start: 20170822
  21. FULVESTRANT. [Concomitant]
     Active Substance: FULVESTRANT
     Dosage: 500 MG, UNK
     Dates: start: 20170111
  22. GRAFEEL [Concomitant]
     Dosage: 300 UG, UNK
     Route: 058
     Dates: start: 20170823
  23. PALBACE [Suspect]
     Active Substance: PALBOCICLIB
     Indication: BREAST CANCER METASTATIC
     Dosage: 125 MG, ONCE A DAY
     Route: 048
     Dates: start: 20161214
  24. PALBACE [Suspect]
     Active Substance: PALBOCICLIB
     Dosage: 125 MG, 1X/DAY
     Route: 048
     Dates: start: 20191114, end: 20210120
  25. FULVESTRANT. [Concomitant]
     Active Substance: FULVESTRANT
     Dosage: 500 MG, UNK
     Dates: start: 20170418
  26. BISPHOSPHONATES [Concomitant]
     Active Substance: UNSPECIFIED INGREDIENT
     Dosage: UNK
     Dates: start: 20170625

REACTIONS (5)
  - Blood calcium increased [Unknown]
  - Neoplasm progression [Unknown]
  - Death [Fatal]
  - Mouth ulceration [Unknown]
  - Discomfort [Recovered/Resolved]

NARRATIVE: CASE EVENT DATE: 201612
